FAERS Safety Report 12790291 (Version 1)
Quarter: 2016Q3

REPORT INFORMATION
  Report Type: Spontaneous
  Country: US (occurrence: US)
  Receive Date: 20160928
  Receipt Date: 20160928
  Transmission Date: 20161109
  Serious: No
  Sender: FDA-Public Use
  Company Number: US-009507513-1609USA013442

PATIENT
  Age: 17 Year
  Sex: Female
  Weight: 49.89 kg

DRUGS (4)
  1. NEXPLANON [Suspect]
     Active Substance: ETONOGESTREL
     Indication: MUSCLE SPASMS
  2. PROZAC [Concomitant]
     Active Substance: FLUOXETINE HYDROCHLORIDE
  3. NAPROXEN. [Concomitant]
     Active Substance: NAPROXEN
  4. NEXPLANON [Suspect]
     Active Substance: ETONOGESTREL
     Indication: CONTRACEPTION
     Dosage: 1 DF, 1 IMPLANT EVERY 3 YEARS
     Route: 059
     Dates: start: 20140702

REACTIONS (5)
  - Amenorrhoea [Unknown]
  - Nail growth abnormal [Unknown]
  - Mood altered [Unknown]
  - Product use issue [Unknown]
  - Hair growth abnormal [Unknown]

NARRATIVE: CASE EVENT DATE: 201408
